FAERS Safety Report 9540073 (Version 1)
Quarter: 2013Q2

REPORT INFORMATION
  Report Type: Spontaneous
  Country: US (occurrence: None)
  Receive Date: 20130521
  Receipt Date: 20130521
  Transmission Date: 20140414
  Serious: Yes (Other)
  Sender: FDA-Public Use
  Company Number: 1000044211

PATIENT
  Age: 71 Year
  Sex: Female

DRUGS (2)
  1. TUDORZA PRESSAIR [Suspect]
     Indication: CHRONIC OBSTRUCTIVE PULMONARY DISEASE
     Dosage: (400 MCG,2 IN 1 D),RESPIRATORY (INHALATION)
     Dates: start: 201303, end: 201304
  2. COUMADIN (WARFARIN)(WARFARIN) [Concomitant]

REACTIONS (1)
  - Vulvovaginal pruritus [None]
